FAERS Safety Report 16817565 (Version 1)
Quarter: 2019Q3

REPORT INFORMATION
  Report Type: Spontaneous
  Country: US (occurrence: US)
  Receive Date: 20190917
  Receipt Date: 20190917
  Transmission Date: 20191005
  Serious: No
  Sender: FDA-Public Use
  Company Number: US-PFIZER INC-2019399076

PATIENT
  Age: 38 Year
  Sex: Female

DRUGS (1)
  1. LYRICA [Suspect]
     Active Substance: PREGABALIN
     Indication: FIBROMYALGIA
     Dosage: UNK

REACTIONS (12)
  - Cerebral disorder [Unknown]
  - Pain [Unknown]
  - Muscle twitching [Unknown]
  - Paraesthesia [Unknown]
  - Dyskinesia [Unknown]
  - Feeling abnormal [Unknown]
  - Constipation [Unknown]
  - Mania [Unknown]
  - Vision blurred [Unknown]
  - Rash [Unknown]
  - Muscle spasms [Unknown]
  - Asthenia [Unknown]
